FAERS Safety Report 9774870 (Version 2)
Quarter: 2014Q1

REPORT INFORMATION
  Report Type: Report from Study
  Country: US (occurrence: US)
  Receive Date: 20131220
  Receipt Date: 20140117
  Transmission Date: 20141002
  Serious: Yes (Hospitalization, Disabling)
  Sender: FDA-Public Use
  Company Number: US-US-EMD SERONO, INC.-7257581

PATIENT
  Age: 51 Year
  Sex: Female
  Weight: 134 kg

DRUGS (6)
  1. REBIF [Suspect]
     Indication: MULTIPLE SCLEROSIS
     Route: 058
     Dates: start: 20131127
  2. REBIF [Suspect]
     Route: 058
     Dates: start: 201312
  3. LOTREL                             /01289101/ [Concomitant]
     Indication: HYPERTENSION
     Dates: start: 2003
  4. LOTREL                             /01289101/ [Concomitant]
     Dates: start: 2003
  5. COREG [Concomitant]
     Indication: HYPERTENSION
     Dates: start: 2003
  6. COREG [Concomitant]
     Dates: start: 2003

REACTIONS (5)
  - Hypertension [Recovered/Resolved]
  - Multiple sclerosis relapse [Unknown]
  - Urinary tract infection [Unknown]
  - Blood glucose increased [Unknown]
  - Eye disorder [Unknown]
